FAERS Safety Report 18315113 (Version 1)
Quarter: 2020Q3

REPORT INFORMATION
  Report Type: Spontaneous
  Country: US (occurrence: US)
  Receive Date: 20200926
  Receipt Date: 20200926
  Transmission Date: 20201103
  Serious: Yes (Hospitalization, Other)
  Sender: FDA-Public Use
  Company Number: US-MICRO LABS LIMITED-ML2020-02830

PATIENT
  Age: 16 Year
  Sex: Female

DRUGS (12)
  1. CLINDAMYCIN. [Suspect]
     Active Substance: CLINDAMYCIN
     Indication: ENTEROCOCCAL INFECTION
  2. LEVOFLOXACIN. [Suspect]
     Active Substance: LEVOFLOXACIN
     Indication: ENTEROCOCCAL INFECTION
  3. CEFOXITIN [Suspect]
     Active Substance: CEFOXITIN SODIUM
     Indication: PYOMETRA
     Dosage: FOR 24 HOURS
     Route: 042
  4. VANCOMYCIN [Suspect]
     Active Substance: VANCOMYCIN
     Indication: PYOMETRA
  5. GENTAMICIN. [Suspect]
     Active Substance: GENTAMICIN
     Indication: PYOMETRA
     Route: 042
  6. TRIMETHOPRIM SULFAMETHOXAZOLE [Suspect]
     Active Substance: SULFAMETHOXAZOLE\TRIMETHOPRIM
     Indication: PYOMETRA
     Dosage: DISCHARGED MEDICATION
  7. CEFTRIAXONE. [Suspect]
     Active Substance: CEFTRIAXONE
     Indication: PYOMETRA
  8. LEVOFLOXACIN. [Suspect]
     Active Substance: LEVOFLOXACIN
     Indication: PYOMETRA
     Dosage: DISCHARGED MEDICATION
  9. DOXYCYCLINE. [Suspect]
     Active Substance: DOXYCYCLINE
     Indication: PYOMETRA
     Dosage: FOR 24 HOURS
     Route: 048
  10. CLINDAMYCIN. [Suspect]
     Active Substance: CLINDAMYCIN
     Indication: PYOMETRA
     Route: 042
  11. CEFDINIR. [Suspect]
     Active Substance: CEFDINIR
     Indication: PYOMETRA
  12. DEPO?PROVERA [Concomitant]
     Active Substance: MEDROXYPROGESTERONE ACETATE
     Indication: UTERINE HAEMORRHAGE
     Dosage: SINCE THE AGE OF 10 YEARS

REACTIONS (1)
  - Drug ineffective [Unknown]
